FAERS Safety Report 15345939 (Version 1)
Quarter: 2018Q3

REPORT INFORMATION
  Report Type: Report from Study
  Country: US (occurrence: US)
  Receive Date: 20180904
  Receipt Date: 20180904
  Transmission Date: 20181010
  Serious: Yes (Other)
  Sender: FDA-Public Use
  Company Number: US-UCBSA-2018036629

PATIENT
  Age: 26 Year
  Sex: Female

DRUGS (5)
  1. LAMICTAL [Suspect]
     Active Substance: LAMOTRIGINE
     Dosage: BACK HER OFF 100
  2. KEPPRA [Suspect]
     Active Substance: LEVETIRACETAM
     Indication: EPILEPSY
     Dosage: 1000 KEPPRA
  3. LAMICTAL [Suspect]
     Active Substance: LAMOTRIGINE
     Indication: EPILEPSY
     Dosage: 400 MG, UNK
  4. DEPAKOTE [Concomitant]
     Active Substance: DIVALPROEX SODIUM
     Indication: EPILEPSY
     Dosage: 750 DEPAKOTE
  5. LACOSAMIDE. [Suspect]
     Active Substance: LACOSAMIDE
     Indication: EPILEPSY
     Dosage: UNK

REACTIONS (3)
  - Diplopia [Unknown]
  - Hypersomnia [Recovering/Resolving]
  - Atonic seizures [Unknown]
